FAERS Safety Report 8891648 (Version 1)
Quarter: 2012Q4

REPORT INFORMATION
  Report Type: 
  Country: SE (occurrence: SE)
  Receive Date: 20121107
  Receipt Date: 20121107
  Transmission Date: 20130627
  Serious: Yes (Hospitalization)
  Sender: FDA-Public Use
  Company Number: SE-PFIZER INC-2012270774

PATIENT
  Age: 73 Year
  Sex: Male
  Weight: 91.5 kg

DRUGS (9)
  1. GENOTROPIN [Suspect]
     Dosage: 0.1 mg, 1x/day , 7 injections/week
     Route: 058
     Dates: start: 20030315
  2. TESTOVIRON-DEPOT [Concomitant]
     Indication: LUTEINISING HORMONE DEFICIENCY
     Dosage: UNK
     Dates: start: 19910429
  3. TESTOVIRON-DEPOT [Concomitant]
     Indication: FOLLICLE-STIMULATING HORMONE DEFICIENCY
  4. TESTOVIRON-DEPOT [Concomitant]
     Indication: TESTICULAR HYPOGONADISM
  5. LEVOTHYROXINE [Concomitant]
     Indication: TSH DECREASE
     Dosage: UNK
     Dates: start: 19960409
  6. LEVOTHYROXINE [Concomitant]
     Indication: PRIMARY HYPOTHYROIDISM
  7. DOSTINEX [Concomitant]
     Indication: ENDOCRINE DISORDER
     Dosage: UNK
     Dates: start: 19990408
  8. SILDENAFIL [Concomitant]
     Indication: SEXUAL FUNCTION ABNORMAL
     Dosage: UNK
     Dates: start: 19991019
  9. CORTISONE ACETATE [Concomitant]
     Indication: ACTH DECREASED
     Dosage: UNK
     Dates: start: 19960409

REACTIONS (1)
  - Gastroenteritis [Unknown]
